FAERS Safety Report 6446692-7 (Version None)
Quarter: 2009Q4

REPORT INFORMATION
  Report Type: 
  Country: None (occurrence: None)
  Receive Date: 20091119
  Receipt Date: 20091118
  Transmission Date: 20100525
  Serious: Yes (Life-Threatening, Other)
  Sender: FDA-Public Use
  Company Number: A0817779A

PATIENT
  Age: 81 Year
  Sex: Male
  Weight: 96.5 kg

DRUGS (29)
  1. COREG [Suspect]
     Indication: BLOOD PRESSURE
     Dosage: 6.25MG TWICE PER DAY
     Route: 048
     Dates: start: 20090926, end: 20091029
  2. AMIODARONE HCL [Suspect]
     Indication: ARRHYTHMIA
     Dosage: 200MG TWICE PER DAY
     Route: 048
     Dates: start: 20091006, end: 20091029
  3. BLINDED TRIAL MEDICATION [Concomitant]
     Indication: MYOCARDIAL REPERFUSION INJURY
     Dosage: 522ML SINGLE DOSE
     Route: 042
     Dates: start: 20091002, end: 20091002
  4. CIPRO [Concomitant]
     Dates: start: 20091005, end: 20091013
  5. FORTAZ [Concomitant]
     Dates: start: 20091005, end: 20091015
  6. NITROGLYCERIN [Concomitant]
     Dates: start: 20091005, end: 20091005
  7. HEPARIN [Concomitant]
     Dates: start: 20091003, end: 20091026
  8. LASIX [Concomitant]
     Dates: start: 20090928, end: 20091029
  9. PERCOCET [Concomitant]
     Dates: start: 20091003, end: 20091013
  10. ZOCOR [Concomitant]
     Dates: start: 20091003
  11. ACETAMINOPHEN [Concomitant]
     Dates: start: 20091002, end: 20091002
  12. AMICAR [Concomitant]
     Dates: start: 20091002, end: 20091002
  13. BICARBONATE [Concomitant]
     Dates: start: 20091002, end: 20091003
  14. DEXTROSE [Concomitant]
     Dates: start: 20091002, end: 20091002
  15. DEMEROL [Concomitant]
     Dates: start: 20091002, end: 20091002
  16. LEVOPHED [Concomitant]
     Dates: start: 20091002, end: 20091003
  17. MILRINONE [Concomitant]
     Dates: start: 20091002, end: 20091006
  18. MORPHINE [Concomitant]
     Dates: start: 20091002, end: 20091013
  19. NOVOLOG [Concomitant]
     Dates: start: 20091002, end: 20091015
  20. REGULAR INSULIN [Concomitant]
     Dates: start: 20091002, end: 20091006
  21. LISINOPRIL [Concomitant]
     Dates: start: 20090929, end: 20091002
  22. LOPRESSOR [Concomitant]
     Dates: start: 20090926, end: 20090928
  23. ASPIRIN [Concomitant]
     Dates: start: 20090926
  24. LIPITOR [Concomitant]
     Dates: start: 20090927, end: 20091001
  25. HEPARIN [Concomitant]
     Dates: start: 20090926, end: 20090926
  26. INTEGRILIN [Concomitant]
     Dates: start: 20090926, end: 20090926
  27. LOVENOX [Concomitant]
     Dates: start: 20090926, end: 20090927
  28. PLAVIX [Concomitant]
     Dates: start: 20090926, end: 20090926
  29. SODIUM BICARB [Concomitant]
     Dosage: 1AMP SINGLE DOSE
     Route: 042
     Dates: start: 20091004, end: 20091004

REACTIONS (6)
  - ABDOMINAL DISCOMFORT [None]
  - ABDOMINAL DISTENSION [None]
  - CARDIAC ARREST [None]
  - DIARRHOEA [None]
  - RESPIRATORY FAILURE [None]
  - SMALL INTESTINAL OBSTRUCTION [None]
